FAERS Safety Report 5476811-0 (Version None)
Quarter: 2007Q4

REPORT INFORMATION
  Report Type: 
  Country: None (occurrence: None)
  Receive Date: 20071003
  Receipt Date: 20071003
  Transmission Date: 20080405
  Serious: No
  Sender: FDA-Public Use
  Company Number: None

PATIENT
  Age: 44 Year
  Sex: Female
  Weight: 90.7194 kg

DRUGS (1)
  1. VANCOMYCIN [Suspect]
     Indication: ANTIBIOTIC PROPHYLAXIS
     Dosage: 1 GM IN D5W 200ML 133.3MLS/HR IV
     Route: 042
     Dates: start: 20070914

REACTIONS (3)
  - ANXIETY [None]
  - INFUSION RELATED REACTION [None]
  - PRURITUS [None]
